FAERS Safety Report 9229959 (Version 1)
Quarter: 2013Q2

REPORT INFORMATION
  Report Type: Spontaneous
  Country: US (occurrence: None)
  Receive Date: 20130412
  Receipt Date: 20130412
  Transmission Date: 20140414
  Serious: Yes (Other)
  Sender: FDA-Public Use
  Company Number: None

PATIENT
  Age: 88 Year
  Sex: Female
  Weight: 49.9 kg

DRUGS (1)
  1. PROLIA [Suspect]
     Dosage: FIRST INJECTION
     Dates: start: 20130312, end: 20130411

REACTIONS (3)
  - Arthralgia [None]
  - Anaemia [None]
  - Pain [None]
